FAERS Safety Report 5822608-9 (Version None)
Quarter: 2008Q3

REPORT INFORMATION
  Report Type: 
  Country: None (occurrence: None)
  Receive Date: 20080723
  Receipt Date: 20080723
  Transmission Date: 20090109
  Serious: No
  Sender: FDA-Public Use
  Company Number: None

PATIENT
  Sex: Female

DRUGS (1)
  1. LEVAQUIN [Suspect]
     Indication: INFECTED CYST
     Dosage: 750M 1 A DAY ORAL - 047
     Route: 048
     Dates: start: 20080714, end: 20080718

REACTIONS (5)
  - ABASIA [None]
  - ARTHRALGIA [None]
  - EYE SWELLING [None]
  - HAEMATEMESIS [None]
  - PAIN IN EXTREMITY [None]
